FAERS Safety Report 21012091 (Version 1)
Quarter: 2022Q2

REPORT INFORMATION
  Report Type: Spontaneous
  Country: CN (occurrence: CN)
  Receive Date: 20220627
  Receipt Date: 20220627
  Transmission Date: 20220721
  Serious: Yes (Other)
  Sender: FDA-Public Use
  Company Number: None

PATIENT
  Age: 72 Year
  Sex: Female
  Weight: 56 kg

DRUGS (5)
  1. CYCLOPHOSPHAMIDE [Suspect]
     Active Substance: CYCLOPHOSPHAMIDE
     Indication: Breast cancer metastatic
     Dosage: 750 MG, QD, D1, FIRST COURSE, 0.9% SODIUM CHLORIDE FOR INJECTION (250ML) + CYCLOPHOSPHAMIDE FOR INJE
     Route: 041
     Dates: start: 20220402, end: 20220402
  2. SODIUM CHLORIDE [Suspect]
     Active Substance: SODIUM CHLORIDE
     Indication: Medication dilution
     Dosage: 250 ML, QD, D1, FIRST COURSE, 0.9% SODIUM CHLORIDE INJECTION (250ML) + CYCLOPHOSPHAMIDE FOR INJECTIO
     Route: 041
     Dates: start: 20220402, end: 20220402
  3. ANHYDROUS DEXTROSE [Suspect]
     Active Substance: ANHYDROUS DEXTROSE
     Indication: Medication dilution
     Dosage: 250 ML, QD, D1, FIRST COURSE, 5% GLUCOSE INJECTION (250ML) + DOCETAXEL INJECTION (90MG)
     Route: 041
     Dates: start: 20220402, end: 20220402
  4. DOCETAXEL [Suspect]
     Active Substance: DOCETAXEL
     Indication: Breast cancer metastatic
     Dosage: 90 MG, QD, D1, FIRST COURSE, 5% GLUCOSE INJECTION (250ML) + DOCETAXEL INJECTION (90MG)
     Route: 041
     Dates: start: 20220402, end: 20220402
  5. TROPISETRON HYDROCHLORIDE [Concomitant]
     Active Substance: TROPISETRON HYDROCHLORIDE
     Indication: Vomiting
     Dosage: 5 MG, QD
     Route: 041
     Dates: start: 20220402, end: 20220402

REACTIONS (1)
  - Myelosuppression [Recovered/Resolved]

NARRATIVE: CASE EVENT DATE: 20220406
